FAERS Safety Report 5675128-9 (Version None)
Quarter: 2008Q1

REPORT INFORMATION
  Report Type: 
  Country: None (occurrence: None)
  Receive Date: 20080320
  Receipt Date: 20080310
  Transmission Date: 20080703
  Serious: Yes (Other)
  Sender: FDA-Public Use
  Company Number: JP-ROCHE-546767

PATIENT
  Age: 24 Month
  Sex: Female
  Weight: 10 kg

DRUGS (6)
  1. TAMIFLU [Suspect]
     Route: 048
     Dates: start: 20080130, end: 20080130
  2. TAMIFLU [Suspect]
     Dosage: DOSE INCREASED
     Route: 048
     Dates: start: 20080131
  3. ERYTHROCIN LACTOBIONATE [Concomitant]
     Route: 048
     Dates: start: 20080129
  4. SINGULAIR [Concomitant]
     Dosage: FORM REPORTED AS FINE GRANULE.
     Route: 048
     Dates: start: 20080129
  5. MUCODYNE [Concomitant]
     Dosage: FORM REPORTED AS FINE GRANULE.
     Route: 048
     Dates: start: 20080129
  6. HOKUNALIN [Concomitant]
     Dosage: FORM REPORTED AS TAPE.
     Route: 062
     Dates: start: 20080129

REACTIONS (1)
  - RESTLESSNESS [None]
